FAERS Safety Report 5594056-0 (Version None)
Quarter: 2008Q1

REPORT INFORMATION
  Report Type: 
  Country: None (occurrence: None)
  Receive Date: 20080116
  Receipt Date: 20080104
  Transmission Date: 20080703
  Serious: Yes (Disabling, Other)
  Sender: FDA-Public Use
  Company Number: DE-WYE-H01411607

PATIENT
  Sex: Male

DRUGS (6)
  1. CORDAREX [Suspect]
     Route: 048
     Dates: end: 20071115
  2. MARCUMAR [Concomitant]
  3. MAGNESIUM [Concomitant]
  4. SOBELIN ^BASOTHERM^ [Concomitant]
  5. RAMIPRIL [Concomitant]
     Dosage: UNKNOWN
     Route: 048
  6. TOREM [Concomitant]

REACTIONS (1)
  - PNEUMONITIS [None]
